FAERS Safety Report 9282421 (Version 4)
Quarter: 2014Q2

REPORT INFORMATION
  Report Type: Spontaneous
  Country: US (occurrence: US)
  Receive Date: 20130510
  Receipt Date: 20140418
  Transmission Date: 20141212
  Serious: Yes (Hospitalization, Other)
  Sender: FDA-Public Use
  Company Number: US-009507513-1305USA002387

PATIENT
  Sex: Male
  Weight: 92.52 kg

DRUGS (8)
  1. FOSAMAX [Suspect]
     Indication: OSTEOPOROSIS
     Dosage: 70 MG, Q FIRST SUNDAY OF MONTH
     Route: 048
     Dates: start: 20011004
  2. FOSAMAX [Suspect]
     Dosage: 70 MG DAILY
     Route: 048
  3. FOSAMAX PLUS D [Suspect]
     Dosage: 70 MG, UNK
     Route: 048
  4. ALENDRONATE SODIUM [Suspect]
     Indication: OSTEOPOROSIS
  5. CALCIUM (UNSPECIFIED) [Concomitant]
     Indication: OSTEOPOROSIS
  6. SINGULAIR [Concomitant]
     Indication: HYPERSENSITIVITY
     Dosage: 10 MG, HS
     Route: 048
  7. ZYRTEC [Concomitant]
     Indication: HYPERSENSITIVITY
     Dosage: 10 MG, HS
  8. FLONASE [Concomitant]
     Indication: HYPERSENSITIVITY
     Dosage: DAILY
     Route: 045

REACTIONS (52)
  - Intramedullary rod insertion [Unknown]
  - Impaired healing [Unknown]
  - Internal fixation of fracture [Unknown]
  - Prostate cancer [Unknown]
  - Haemorrhagic anaemia [Unknown]
  - Renal failure chronic [Not Recovered/Not Resolved]
  - Basal cell carcinoma [Unknown]
  - Hyperkalaemia [Recovering/Resolving]
  - Femur fracture [Unknown]
  - Incorrect dose administered [Unknown]
  - Muscle strain [Unknown]
  - Deep vein thrombosis [Unknown]
  - Fall [Unknown]
  - Rotator cuff syndrome [Unknown]
  - Osteopenia [Unknown]
  - Fracture [Unknown]
  - Herpes zoster [Unknown]
  - Post herpetic neuralgia [Unknown]
  - Blood testosterone decreased [Unknown]
  - Erectile dysfunction [Unknown]
  - Inguinal hernia [Unknown]
  - Blood pressure increased [Unknown]
  - Hypertension [Unknown]
  - Dementia [Unknown]
  - Iliotibial band syndrome [Recovered/Resolved]
  - Hypercholesterolaemia [Unknown]
  - Prostatic specific antigen increased [Unknown]
  - Actinic keratosis [Unknown]
  - Actinic keratosis [Unknown]
  - Inguinal hernia repair [Recovering/Resolving]
  - Osteoarthritis [Unknown]
  - Peripheral embolism [Unknown]
  - Vertebroplasty [Unknown]
  - Dyspnoea [Unknown]
  - Benign prostatic hyperplasia [Unknown]
  - Spinal compression fracture [Unknown]
  - Upper-airway cough syndrome [Not Recovered/Not Resolved]
  - Aspiration joint [Unknown]
  - Skin abrasion [Unknown]
  - Cellulitis [Unknown]
  - Treatment noncompliance [Unknown]
  - Irritable bowel syndrome [Unknown]
  - Cardiac murmur [Unknown]
  - Actinic keratosis [Unknown]
  - Osteoarthritis [Unknown]
  - Exostosis [Unknown]
  - Ligament calcification [Unknown]
  - Osteopetrosis [Unknown]
  - Headache [Unknown]
  - Drug ineffective [Unknown]
  - Gastrooesophageal reflux disease [Unknown]
  - Dyspepsia [Unknown]
